FAERS Safety Report 9682811 (Version 4)
Quarter: 2016Q1

REPORT INFORMATION
  Report Type: Report from Study
  Country: US (occurrence: US)
  Receive Date: 20131112
  Receipt Date: 20160229
  Transmission Date: 20160526
  Serious: Yes (Hospitalization, Other)
  Sender: FDA-Public Use
  Company Number: US-SA-2013SA114340

PATIENT
  Age: 55 Year
  Sex: Female

DRUGS (2)
  1. AUBAGIO [Suspect]
     Active Substance: TERIFLUNOMIDE
     Indication: MULTIPLE SCLEROSIS
     Route: 048
  2. AUBAGIO [Suspect]
     Active Substance: TERIFLUNOMIDE
     Indication: MULTIPLE SCLEROSIS
     Route: 048
     Dates: start: 20131021

REACTIONS (9)
  - Headache [Unknown]
  - Intervertebral disc injury [Recovered/Resolved]
  - Multiple sclerosis relapse [Unknown]
  - Pain [Recovered/Resolved]
  - Hypoaesthesia [Unknown]
  - Drug dose omission [Unknown]
  - Diabetes mellitus [Unknown]
  - Sciatica [Recovered/Resolved]
  - Nerve root compression [Recovering/Resolving]

NARRATIVE: CASE EVENT DATE: 20131021
